FAERS Safety Report 8070008-6 (Version None)
Quarter: 2012Q1

REPORT INFORMATION
  Report Type: 
  Country: None (occurrence: None)
  Receive Date: 20120119
  Receipt Date: 20120110
  Transmission Date: 20120608
  Serious: Yes (Hospitalization)
  Sender: FDA-Public Use
  Company Number: ADR-2012-00091

PATIENT
  Age: 17 Year
  Sex: Male

DRUGS (1)
  1. LIORESAL [Suspect]

REACTIONS (10)
  - HAEMOGLOBIN DECREASED [None]
  - HYPOCHROMASIA [None]
  - PSEUDOMENINGOCELE [None]
  - ANISOCYTOSIS [None]
  - MEAN CELL HAEMOGLOBIN CONCENTRATION DECREASED [None]
  - RED CELL DISTRIBUTION WIDTH INCREASED [None]
  - MEAN CELL HAEMOGLOBIN DECREASED [None]
  - CEREBRAL VENTRICLE DILATATION [None]
  - HYPERNATRAEMIA [None]
  - PLATELET MORPHOLOGY ABNORMAL [None]
